FAERS Safety Report 8790062 (Version 1)
Quarter: 2012Q4

REPORT INFORMATION
  Report Type: 
  Country: US (occurrence: US)
  Receive Date: 20120917
  Receipt Date: 20120917
  Transmission Date: 20130627
  Serious: Yes (Hospitalization, Other)
  Sender: FDA-Public Use
  Company Number: US-SANOFI-AVENTIS-2012SA066038

PATIENT
  Age: 74 Year
  Sex: Female

DRUGS (9)
  1. PLAVIX [Suspect]
     Indication: THROMBOSIS PROPHYLAXIS
     Route: 048
     Dates: start: 2006, end: 20120815
  2. BETAPACE [Suspect]
     Route: 065
     Dates: end: 20120815
  3. CARDIZEM [Suspect]
     Route: 065
     Dates: end: 20120815
  4. DIGOXIN [Suspect]
     Route: 065
     Dates: end: 20120815
  5. ATORVASTATIN [Concomitant]
  6. MULTIVITAMINS [Concomitant]
  7. LUTEIN [Concomitant]
  8. COQ10 [Concomitant]
  9. XANAX [Concomitant]

REACTIONS (5)
  - Atrial fibrillation [Unknown]
  - Heart rate irregular [Unknown]
  - Drug ineffective [Unknown]
  - Diarrhoea [Unknown]
  - Vomiting [Unknown]
